FAERS Safety Report 16467050 (Version 10)
Quarter: 2021Q1

REPORT INFORMATION
  Report Type: Report from Study
  Country: FR (occurrence: FR)
  Receive Date: 20190624
  Receipt Date: 20210222
  Transmission Date: 20210419
  Serious: Yes (Other)
  Sender: FDA-Public Use
  Company Number: FR-ROCHE-2336365

PATIENT
  Age: 57 Year
  Sex: Female
  Weight: 92 kg

DRUGS (5)
  1. SCOPOLAMINE [Concomitant]
     Active Substance: SCOPOLAMINE
     Route: 042
     Dates: start: 20190620, end: 20190625
  2. ATEZOLIZUMAB. [Suspect]
     Active Substance: ATEZOLIZUMAB
     Indication: OVARIAN CANCER RECURRENT
     Dosage: ON 22/MAY/2019, SHE RECEIVED MOST RECENT DOSE OF ATEZOLIZUMAB PRIOR TO SERIOUS ADVERSE EVENT (SAE).
     Route: 042
     Dates: start: 20190522
  3. PREDNISONE. [Concomitant]
     Active Substance: PREDNISONE
     Route: 048
     Dates: start: 20190620, end: 20190626
  4. BEVACIZUMAB. [Suspect]
     Active Substance: BEVACIZUMAB
     Indication: OVARIAN CANCER RECURRENT
     Dosage: ON 28/MAY/2019, SHE RECEIVED MOST RECENT DOSE OF BEVACIZUMAB OF 1350 MG PRIOR TO SAE.
     Route: 042
     Dates: start: 20190325
  5. SOMATULINE [Concomitant]
     Active Substance: LANREOTIDE ACETATE
     Route: 042
     Dates: start: 20190624, end: 20190624

REACTIONS (1)
  - Encephalopathy [Recovered/Resolved]

NARRATIVE: CASE EVENT DATE: 20190610
